FAERS Safety Report 13243262 (Version 1)
Quarter: 2017Q1

REPORT INFORMATION
  Report Type: Spontaneous
  Country: FR (occurrence: FR)
  Receive Date: 20170217
  Receipt Date: 20170217
  Transmission Date: 20170428
  Serious: Yes (Death, Hospitalization)
  Sender: FDA-Public Use
  Company Number: FR-PFIZER INC-2017067008

PATIENT
  Age: 68 Year
  Sex: Male

DRUGS (5)
  1. MEDROL [Suspect]
     Active Substance: METHYLPREDNISOLONE
     Dosage: UNK UNK, DAILY
     Route: 048
  2. MEDROL [Suspect]
     Active Substance: METHYLPREDNISOLONE
     Dosage: 16 MG, DAILY
     Route: 048
     Dates: start: 201608, end: 20160817
  3. SOLUPRED /00016201/ [Concomitant]
     Active Substance: PREDNISOLONE
     Dosage: 100 MG BETWEEN 27SEP2016 AND 28SEP2016
     Dates: start: 20160927, end: 20160928
  4. MEDROL [Suspect]
     Active Substance: METHYLPREDNISOLONE
     Dosage: 32 MG, DAILY
     Route: 048
     Dates: start: 20160928, end: 20161019
  5. OPDIVO [Suspect]
     Active Substance: NIVOLUMAB
     Dosage: 300 MG, SINGLE
     Dates: start: 20160913, end: 20160913

REACTIONS (2)
  - Pneumocystis jirovecii pneumonia [Unknown]
  - Death [Fatal]

NARRATIVE: CASE EVENT DATE: 20161007
